FAERS Safety Report 8841228 (Version 1)
Quarter: 2012Q4

REPORT INFORMATION
  Report Type: 
  Country: DE (occurrence: DE)
  Receive Date: 20121015
  Receipt Date: 20121015
  Transmission Date: 20130627
  Serious: Yes (Hospitalization, Other)
  Sender: FDA-Public Use
  Company Number: DE-UCBSA-068570

PATIENT
  Age: 0 Year
  Sex: Male
  Weight: 1.86 kg

DRUGS (4)
  1. KEPPRA [Suspect]
     Indication: EPILEPSY
     Route: 064
     Dates: start: 20100225, end: 20101029
  2. LAMICTAL [Suspect]
     Indication: EPILEPSY
     Route: 064
     Dates: start: 20100225, end: 20101029
  3. CLOZAPINE [Suspect]
     Indication: SCHIZOPHRENIA
     Dosage: 100-0-200-200
     Route: 064
     Dates: start: 20100225, end: 20101029
  4. NASIVIN [Concomitant]
     Indication: NASOPHARYNGITIS
     Route: 064
     Dates: start: 20101022, end: 20101023

REACTIONS (7)
  - Premature baby [Unknown]
  - Atrial septal defect [Unknown]
  - Neonatal respiratory distress syndrome [Recovered/Resolved]
  - Umbilical hernia [Recovered/Resolved with Sequelae]
  - Small for dates baby [Recovering/Resolving]
  - Foetal exposure during pregnancy [Recovered/Resolved]
  - Caesarean section [None]
